FAERS Safety Report 17685352 (Version 1)
Quarter: 2020Q2

REPORT INFORMATION
  Report Type: Spontaneous
  Country: US (occurrence: US)
  Receive Date: 20200417
  Receipt Date: 20200417
  Transmission Date: 20200714
  Serious: Yes (Hospitalization)
  Sender: FDA-Public Use
  Company Number: None

PATIENT
  Age: 58 Year
  Sex: Male

DRUGS (1)
  1. LOSARTAN (LOSARTAN POTASSIUM 50MG TAB, UD) [Suspect]
     Active Substance: LOSARTAN POTASSIUM
     Indication: HYPERTENSION
     Dates: start: 20181206, end: 20190521

REACTIONS (7)
  - Dysphagia [None]
  - Upper airway obstruction [None]
  - Dysphonia [None]
  - Dyspnoea [None]
  - Palatal oedema [None]
  - Sneezing [None]
  - Lip swelling [None]

NARRATIVE: CASE EVENT DATE: 20190522
